FAERS Safety Report 8295242 (Version 2)
Quarter: 2014Q3

REPORT INFORMATION
  Report Type: Spontaneous
  Country: US (occurrence: US)
  Receive Date: 20111216
  Receipt Date: 20140806
  Transmission Date: 20150326
  Serious: Yes (Death, Hospitalization)
  Sender: FDA-Public Use
  Company Number: US-GLAXOSMITHKLINE-A0853706A

PATIENT
  Sex: Female

DRUGS (1)
  1. AVANDIA [Suspect]
     Active Substance: ROSIGLITAZONE MALEATE
     Indication: DIABETES MELLITUS
     Route: 048
     Dates: start: 2000, end: 2003

REACTIONS (9)
  - Arteriosclerosis [Unknown]
  - Cerebrovascular accident [Fatal]
  - Coronary artery disease [Unknown]
  - Syncope [Unknown]
  - Ventricular extrasystoles [Unknown]
  - Carotid artery disease [Unknown]
  - Supraventricular tachycardia [Unknown]
  - Atrial fibrillation [Unknown]
  - Hypertension [Unknown]
